FAERS Safety Report 15878855 (Version 1)
Quarter: 2019Q1

REPORT INFORMATION
  Report Type: Spontaneous
  Country: US (occurrence: US)
  Receive Date: 20190125
  Receipt Date: 20190125
  Transmission Date: 20190417
  Serious: Yes (Other)
  Sender: FDA-Public Use
  Company Number: None

PATIENT
  Age: 65 Year
  Sex: Female
  Weight: 77.4 kg

DRUGS (8)
  1. INGREZZA [Suspect]
     Active Substance: VALBENAZINE
     Indication: TARDIVE DYSKINESIA
     Dosage: ?          QUANTITY:1 CAPSULE(S);?
     Route: 048
     Dates: start: 20190117, end: 20190124
  2. EFFECTOR [Concomitant]
  3. POTASSIUM [Concomitant]
     Active Substance: POTASSIUM
  4. LOSARTIN HCTZ [Concomitant]
  5. ATIVAN [Concomitant]
     Active Substance: LORAZEPAM
  6. VITAMIN B12 [Concomitant]
     Active Substance: CYANOCOBALAMIN
  7. LYRICA [Concomitant]
     Active Substance: PREGABALIN
  8. VITAMIN D3 [Concomitant]
     Active Substance: CHOLECALCIFEROL

REACTIONS (5)
  - Seizure [None]
  - Lip swelling [None]
  - Respiratory distress [None]
  - Insomnia [None]
  - Swollen tongue [None]

NARRATIVE: CASE EVENT DATE: 20190125
